FAERS Safety Report 21991651 (Version 1)
Quarter: 2023Q1

REPORT INFORMATION
  Report Type: Spontaneous
  Country: GB (occurrence: GB)
  Receive Date: 20230214
  Receipt Date: 20230214
  Transmission Date: 20230417
  Serious: Yes (Other)
  Sender: FDA-Public Use
  Company Number: GB-MHRA-MED-202302090218155640-YLQVN

PATIENT
  Age: 7 Year
  Sex: Male
  Weight: 40 kg

DRUGS (4)
  1. METHYLPHENIDATE [Suspect]
     Active Substance: METHYLPHENIDATE
     Indication: Attention deficit hyperactivity disorder
     Dosage: 10 MILLIGRAM
     Route: 065
     Dates: start: 20170101
  2. METHYLPHENIDATE [Suspect]
     Active Substance: METHYLPHENIDATE
     Dosage: 20 MILLIGRAM
     Route: 065
  3. METHYLPHENIDATE [Suspect]
     Active Substance: METHYLPHENIDATE
     Dosage: 30 MILLIGRAM
     Route: 065
     Dates: start: 2022
  4. METHYLPHENIDATE [Suspect]
     Active Substance: METHYLPHENIDATE
     Dosage: 20 MILLIGRAM
     Route: 065

REACTIONS (3)
  - Social anxiety disorder [Not Recovered/Not Resolved]
  - Selective mutism [Not Recovered/Not Resolved]
  - Tic [Recovered/Resolved with Sequelae]

NARRATIVE: CASE EVENT DATE: 20180101
